FAERS Safety Report 11734067 (Version 2)
Quarter: 2015Q4

REPORT INFORMATION
  Report Type: Spontaneous
  Country: BR (occurrence: BR)
  Receive Date: 20151113
  Receipt Date: 20151116
  Transmission Date: 20160304
  Serious: Yes (Life-Threatening, Other)
  Sender: FDA-Public Use
  Company Number: BR-JNJFOC-20151106086

PATIENT
  Age: 68 Year
  Sex: Female

DRUGS (2)
  1. TYLEX [Suspect]
     Active Substance: ACETAMINOPHEN\CODEINE PHOSPHATE
     Indication: POLYNEUROPATHY
     Route: 065
     Dates: start: 2014, end: 2015
  2. TYLEX [Suspect]
     Active Substance: ACETAMINOPHEN\CODEINE PHOSPHATE
     Indication: FIBROMYALGIA
     Route: 065
     Dates: start: 2014, end: 2015

REACTIONS (10)
  - Drug ineffective [Unknown]
  - Petit mal epilepsy [Unknown]
  - Balance disorder [Unknown]
  - Swelling [Unknown]
  - Dizziness [Unknown]
  - Feeling abnormal [Unknown]
  - Vomiting [Unknown]
  - Product use issue [Unknown]
  - Medication error [Unknown]
  - Pain [Unknown]

NARRATIVE: CASE EVENT DATE: 20151102
